FAERS Safety Report 8140124-9 (Version None)
Quarter: 2012Q1

REPORT INFORMATION
  Report Type: 
  Country: None (occurrence: None)
  Receive Date: 20120216
  Receipt Date: 20120206
  Transmission Date: 20120608
  Serious: Yes (Hospitalization)
  Sender: FDA-Public Use
  Company Number: US-BIOGENIDEC-2012BI001662

PATIENT
  Age: 53 Year
  Sex: Male

DRUGS (1)
  1. TYSABRI [Suspect]
     Indication: MULTIPLE SCLEROSIS
     Route: 042
     Dates: start: 20111208

REACTIONS (7)
  - NERVOUS SYSTEM DISORDER [None]
  - HEMIPARESIS [None]
  - FALL [None]
  - MENTAL STATUS CHANGES [None]
  - CYTOMEGALOVIRUS INFECTION [None]
  - ENCEPHALITIS [None]
  - DEMYELINATION [None]
